FAERS Safety Report 7430288-4 (Version None)
Quarter: 2011Q2

REPORT INFORMATION
  Report Type: 
  Country: None (occurrence: None)
  Receive Date: 20110421
  Receipt Date: 20110415
  Transmission Date: 20111010
  Serious: Yes (Hospitalization)
  Sender: FDA-Public Use
  Company Number: US-BAYER-2011-020500

PATIENT
  Age: 40 Year
  Sex: Male

DRUGS (2)
  1. HELIXATE FS [Suspect]
     Indication: FACTOR VIII DEFICIENCY
     Dosage: 3325 U, QD
     Route: 042
     Dates: start: 20101123, end: 20101125
  2. HELIXATE FS [Suspect]
     Indication: HAEMORRHAGE

REACTIONS (1)
  - HAEMORRHAGE [None]
